FAERS Safety Report 17632584 (Version 1)
Quarter: 2020Q2

REPORT INFORMATION
  Report Type: Spontaneous
  Country: US (occurrence: US)
  Receive Date: 20200406
  Receipt Date: 20200406
  Transmission Date: 20200713
  Serious: No
  Sender: FDA-Public Use
  Company Number: US-BEH-2020114927

PATIENT
  Age: 18 Year
  Sex: Female

DRUGS (20)
  1. BUSPIRONE [Concomitant]
     Active Substance: BUSPIRONE HYDROCHLORIDE
  2. MYCOPHENOLIC ACID. [Concomitant]
     Active Substance: MYCOPHENOLIC ACID
  3. CARNITOR [Concomitant]
     Active Substance: LEVOCARNITINE
  4. HYDROCORTISONE. [Concomitant]
     Active Substance: HYDROCORTISONE
  5. HIZENTRA [Suspect]
     Active Substance: HUMAN IMMUNOGLOBULIN G
     Indication: POLYNEUROPATHY
     Dosage: 10 GRAM, QW
     Route: 058
     Dates: start: 20180501
  6. TACROLIMUS. [Concomitant]
     Active Substance: TACROLIMUS
  7. CITALOPRAM [Concomitant]
     Active Substance: CITALOPRAM HYDROBROMIDE
  8. TRAZODONE [Concomitant]
     Active Substance: TRAZODONE HYDROCHLORIDE
  9. HIZENTRA [Suspect]
     Active Substance: HUMAN IMMUNOGLOBULIN G
     Dosage: UNK
     Route: 058
  10. CLONIDINE. [Concomitant]
     Active Substance: CLONIDINE
  11. CLOTRIMAZOLE. [Concomitant]
     Active Substance: CLOTRIMAZOLE
  12. FEROSUL [Concomitant]
     Active Substance: FERROUS SULFATE
  13. NORETHINDRONE ACETATE. [Concomitant]
     Active Substance: NORETHINDRONE ACETATE
  14. ONDANSETRON [Concomitant]
     Active Substance: ONDANSETRON
  15. AMLODIPINE [Concomitant]
     Active Substance: AMLODIPINE BESYLATE
  16. BACLOFEN. [Concomitant]
     Active Substance: BACLOFEN
  17. SODIUM BICARBONATE. [Concomitant]
     Active Substance: SODIUM BICARBONATE
  18. BENADRYL [Concomitant]
     Active Substance: DIPHENHYDRAMINE HYDROCHLORIDE
     Indication: PREMEDICATION
  19. HIZENTRA [Suspect]
     Active Substance: HUMAN IMMUNOGLOBULIN G
     Dosage: UNK
     Route: 058
  20. PANTOPRAZOLE [Concomitant]
     Active Substance: PANTOPRAZOLE

REACTIONS (3)
  - Pruritus [Not Recovered/Not Resolved]
  - No adverse event [Unknown]
  - Product use in unapproved indication [Unknown]
